FAERS Safety Report 15517403 (Version 1)
Quarter: 2018Q4

REPORT INFORMATION
  Report Type: Spontaneous
  Country: US (occurrence: US)
  Receive Date: 20181017
  Receipt Date: 20181017
  Transmission Date: 20190205
  Serious: No
  Sender: FDA-Public Use
  Company Number: US-MYLANLABS-2018M1073069

PATIENT
  Sex: Female
  Weight: 68 kg

DRUGS (1)
  1. ESTRADIOL TRANSDERMAL SYSTEM [Suspect]
     Active Substance: ESTRADIOL
     Indication: HYSTERECTOMY
     Dosage: 0.075 MG, QD
     Route: 062

REACTIONS (6)
  - Drug ineffective [Unknown]
  - Product adhesion issue [Unknown]
  - Application site irritation [Unknown]
  - Mood altered [Unknown]
  - Pyrexia [Unknown]
  - Wrong technique in product usage process [Unknown]
